FAERS Safety Report 17713124 (Version 2)
Quarter: 2020Q2

REPORT INFORMATION
  Report Type: Spontaneous
  Country: IL (occurrence: IL)
  Receive Date: 20200427
  Receipt Date: 20200506
  Transmission Date: 20200714
  Serious: Yes (Other)
  Sender: FDA-Public Use
  Company Number: IL-ROCHE-2588828

PATIENT
  Age: 71 Year
  Sex: Male
  Weight: 110 kg

DRUGS (1)
  1. ACTEMRA [Suspect]
     Active Substance: TOCILIZUMAB
     Indication: COVID-19
     Route: 042
     Dates: start: 20200325

REACTIONS (5)
  - Intestinal perforation [Unknown]
  - Off label use [Unknown]
  - Confusional state [Unknown]
  - Intentional product use issue [Unknown]
  - White blood cell count increased [Unknown]
